FAERS Safety Report 18945533 (Version 1)
Quarter: 2021Q1

REPORT INFORMATION
  Report Type: Report from Study
  Country: CA (occurrence: CA)
  Receive Date: 20210226
  Receipt Date: 20210226
  Transmission Date: 20210420
  Serious: Yes (Hospitalization, Other)
  Sender: FDA-Public Use
  Company Number: CA-JNJFOC-20200146775

PATIENT
  Age: 7 Decade
  Sex: Male
  Weight: 64.5 kg

DRUGS (2)
  1. STELARA [Suspect]
     Active Substance: USTEKINUMAB
     Indication: CROHN^S DISEASE
     Route: 058
     Dates: start: 20130206
  2. STELARA [Suspect]
     Active Substance: USTEKINUMAB
     Dosage: FOR BATCH JKS1YMA EXPIRY DATE 01?OCT?2022
     Route: 058
     Dates: start: 20181105

REACTIONS (4)
  - Pulmonary thrombosis [Recovering/Resolving]
  - Kidney infection [Recovered/Resolved]
  - Crohn^s disease [Not Recovered/Not Resolved]
  - Nephrolithiasis [Not Recovered/Not Resolved]

NARRATIVE: CASE EVENT DATE: 2019
